FAERS Safety Report 5517370-3 (Version None)
Quarter: 2007Q4

REPORT INFORMATION
  Report Type: 
  Country: None (occurrence: None)
  Receive Date: 20071114
  Receipt Date: 20071101
  Transmission Date: 20080405
  Serious: Yes (Other)
  Sender: FDA-Public Use
  Company Number: GR-AMGEN-UK251283

PATIENT
  Sex: Male
  Weight: 58 kg

DRUGS (2)
  1. KEPIVANCE [Suspect]
     Indication: PRE-EXISTING DISEASE
     Route: 042
     Dates: start: 20070316, end: 20070324
  2. ANTIBIOTICS NOS [Concomitant]
     Route: 065

REACTIONS (5)
  - CHOKING SENSATION [None]
  - EPIGLOTTIC OEDEMA [None]
  - ERYTHEMA [None]
  - OEDEMA PERIPHERAL [None]
  - TONGUE OEDEMA [None]
